FAERS Safety Report 4551253-0 (Version None)
Quarter: 2005Q1

REPORT INFORMATION
  Report Type: 
  Country: None (occurrence: None)
  Receive Date: 20050106
  Receipt Date: 20041222
  Transmission Date: 20050727
  Serious: Yes (Death)
  Sender: FDA-Public Use
  Company Number: 2004JP002293

PATIENT
  Age: 53 Year
  Sex: Female

DRUGS (2)
  1. PROGRAF [Suspect]
  2. METHOTREXATE [Concomitant]

REACTIONS (12)
  - ALLOGENIC BONE MARROW TRANSPLANTATION THERAPY [None]
  - CORD BLOOD TRANSPLANT THERAPY [None]
  - CYTOMEGALOVIRUS ANTIBODY POSITIVE [None]
  - HEPATITIS ACUTE [None]
  - HEPATITIS VIRAL [None]
  - IMMUNOSUPPRESSION [None]
  - INFECTION [None]
  - LYMPHOCYTIC INFILTRATION [None]
  - LYMPHOPROLIFERATIVE DISORDER [None]
  - MULTI-ORGAN FAILURE [None]
  - PANCYTOPENIA [None]
  - TRANSPLANT FAILURE [None]
